FAERS Safety Report 8966715 (Version 1)
Quarter: 2012Q4

REPORT INFORMATION
  Report Type: 
  Country: US (occurrence: US)
  Receive Date: 20121214
  Receipt Date: 20121214
  Transmission Date: 20130627
  Serious: No
  Sender: FDA-Public Use
  Company Number: US-009507513-1212USA004661

PATIENT
  Age: 26 Year
  Sex: Female

DRUGS (3)
  1. CLARITIN-D [Suspect]
     Indication: HYPERSENSITIVITY
     Dosage: UNK, Unknown
     Route: 048
  2. CLARITIN-D [Suspect]
     Indication: SNEEZING
  3. CLARITIN-D [Suspect]
     Indication: RESPIRATORY TRACT CONGESTION

REACTIONS (1)
  - Drug ineffective [Unknown]
